FAERS Safety Report 11677035 (Version 2)
Quarter: 2015Q4

REPORT INFORMATION
  Report Type: Spontaneous
  Country: US (occurrence: US)
  Receive Date: 20151027
  Receipt Date: 20151104
  Transmission Date: 20160304
  Serious: No
  Sender: FDA-Public Use
  Company Number: US-ELI_LILLY_AND_COMPANY-US201007007557

PATIENT
  Sex: Female

DRUGS (12)
  1. FORTEO [Suspect]
     Active Substance: TERIPARATIDE
     Dosage: 20 UG, DAILY (1/D)
  2. FORTEO [Suspect]
     Active Substance: TERIPARATIDE
     Dosage: 20 UG, DAILY (1/D)
  3. METOPROLOL [Concomitant]
     Active Substance: METOPROLOL
  4. DIGITOXIN [Concomitant]
     Active Substance: DIGITOXIN
  5. MICARDIS [Concomitant]
     Active Substance: TELMISARTAN
  6. FORTEO [Suspect]
     Active Substance: TERIPARATIDE
     Indication: OSTEOPOROSIS
     Dosage: 20 UG, DAILY (1/D)
     Dates: start: 201003
  7. BABY ASPIRIN [Concomitant]
     Active Substance: ASPIRIN
  8. FORTEO [Suspect]
     Active Substance: TERIPARATIDE
     Dosage: 20 UG, DAILY (1/D)
  9. WARFARIN [Concomitant]
     Active Substance: WARFARIN
  10. CRESTOR [Concomitant]
     Active Substance: ROSUVASTATIN CALCIUM
  11. CALCIUM [Concomitant]
     Active Substance: CALCIUM
  12. VITAMIN D [Concomitant]
     Active Substance: CHOLECALCIFEROL

REACTIONS (2)
  - Muscle spasms [Not Recovered/Not Resolved]
  - Injection site haematoma [Recovering/Resolving]

NARRATIVE: CASE EVENT DATE: 2010
